FAERS Safety Report 7833459-8 (Version None)
Quarter: 2011Q4

REPORT INFORMATION
  Report Type: 
  Country: None (occurrence: None)
  Receive Date: 20111024
  Receipt Date: 20111018
  Transmission Date: 20120403
  Serious: Yes (Hospitalization, Other)
  Sender: FDA-Public Use
  Company Number: US-B.I. PHARMACEUTICALS,INC./RIDGEFIELD-2011-BP-24496BP

PATIENT
  Age: 60 Year
  Sex: Male

DRUGS (7)
  1. SUMATRIPTAN SUCCINATE [Concomitant]
     Indication: HEADACHE
     Route: 058
     Dates: start: 20110901, end: 20111001
  2. CARVEDILOL [Concomitant]
     Indication: HYPERTENSION
     Route: 048
  3. WARFARIN SODIUM [Concomitant]
     Indication: CORONARY ARTERY DISEASE
     Route: 048
  4. ALBUTEROL [Concomitant]
     Indication: CHRONIC OBSTRUCTIVE PULMONARY DISEASE
     Route: 055
  5. SPIRIVA [Suspect]
     Indication: CHRONIC OBSTRUCTIVE PULMONARY DISEASE
     Dosage: 18 MCG
     Route: 055
  6. FLOMAX [Concomitant]
     Indication: BENIGN PROSTATIC HYPERPLASIA
     Route: 048
  7. LEVOTHYROXINE SODIUM [Concomitant]
     Indication: HYPOTHYROIDISM
     Route: 048

REACTIONS (3)
  - HEADACHE [None]
  - CONVULSION [None]
  - COMA [None]
